FAERS Safety Report 6883120-1 (Version None)
Quarter: 2010Q3

REPORT INFORMATION
  Report Type: 
  Country: None (occurrence: None)
  Receive Date: 20100727
  Receipt Date: 20100712
  Transmission Date: 20110219
  Serious: Yes (Life-Threatening, Hospitalization)
  Sender: FDA-Public Use
  Company Number: AUR-APL-2010-01696

PATIENT
  Age: 66 Year
  Sex: Male

DRUGS (2)
  1. SIMVASTATIN [Suspect]
     Indication: TRANSIENT ISCHAEMIC ATTACK
     Dosage: 40MG, ORAL
     Route: 048
     Dates: start: 20100621, end: 20100626
  2. ASPIRIN [Concomitant]

REACTIONS (4)
  - CONTUSION [None]
  - EPISTAXIS [None]
  - HAEMOPTYSIS [None]
  - THROMBOCYTOPENIA [None]
